FAERS Safety Report 9718068 (Version 2)
Quarter: 2013Q4

REPORT INFORMATION
  Report Type: Spontaneous
  Country: US (occurrence: US)
  Receive Date: 20131125
  Receipt Date: 20131125
  Transmission Date: 20140711
  Serious: No
  Sender: FDA-Public Use
  Company Number: US-VIVUS-2013V1000507

PATIENT
  Age: 49 Year
  Sex: Male
  Weight: 113.95 kg

DRUGS (1)
  1. QSYMIA 7.5MG/46MG [Suspect]
     Indication: OBESITY
     Route: 048
     Dates: start: 20130425, end: 20130713

REACTIONS (2)
  - Panic attack [Recovered/Resolved]
  - Aggression [Recovered/Resolved with Sequelae]
